FAERS Safety Report 13006658 (Version 2)
Quarter: 2017Q1

REPORT INFORMATION
  Report Type: Report from Study
  Country: None (occurrence: JP)
  Receive Date: 20161207
  Receipt Date: 20170112
  Transmission Date: 20170428
  Serious: Yes (Hospitalization)
  Sender: FDA-Public Use
  Company Number: JP-ABBVIE-16P-087-1800249-00

PATIENT
  Age: 64 Year
  Sex: Female
  Weight: 59 kg

DRUGS (13)
  1. MESALAZINE [Concomitant]
     Active Substance: MESALAMINE
     Indication: BEHCET^S SYNDROME
     Route: 048
     Dates: end: 20160208
  2. BFLUID [Concomitant]
     Active Substance: AMINO ACIDS\DEXTROSE\ELECTROLYTES NOS\VITAMINS
     Indication: BEHCET^S SYNDROME
     Route: 050
     Dates: start: 20160208, end: 20160220
  3. CLOSTRIDIUM BUTYRICUM [Concomitant]
     Active Substance: CLOSTRIDIUM BUTYRICUM SPORES STRAIN M-55
     Indication: BEHCET^S SYNDROME
     Route: 048
     Dates: start: 20130805, end: 20160208
  4. HUMIRA [Suspect]
     Active Substance: ADALIMUMAB
     Indication: BEHCET^S SYNDROME
     Route: 058
     Dates: start: 20130722, end: 20130722
  5. MAGNESIUM OXIDE. [Concomitant]
     Active Substance: MAGNESIUM OXIDE
     Route: 048
     Dates: start: 20160220
  6. HUMIRA [Suspect]
     Active Substance: ADALIMUMAB
     Route: 058
     Dates: start: 20160302
  7. CLOSTRIDIUM BUTYRICUM [Concomitant]
     Active Substance: CLOSTRIDIUM BUTYRICUM SPORES STRAIN M-55
     Route: 048
     Dates: start: 20160220
  8. MAGNESIUM OXIDE. [Concomitant]
     Active Substance: MAGNESIUM OXIDE
     Indication: PRODUCT USED FOR UNKNOWN INDICATION
     Route: 048
     Dates: start: 20130805, end: 20160208
  9. HUMIRA [Suspect]
     Active Substance: ADALIMUMAB
     Route: 058
     Dates: start: 20130819, end: 20160201
  10. MESALAZINE [Concomitant]
     Active Substance: MESALAMINE
     Route: 048
     Dates: start: 20160220, end: 20160623
  11. ELENTAL [Concomitant]
     Active Substance: AMINO ACIDS\CARBOHYDRATES\MINERALS\SOYBEAN OIL\VITAMINS
     Indication: BEHCET^S SYNDROME
     Route: 048
     Dates: start: 20131021, end: 20160208
  12. HUMIRA [Suspect]
     Active Substance: ADALIMUMAB
     Route: 058
     Dates: start: 20130805, end: 20130805
  13. ACETATED RINGER^S SOLUTION [Concomitant]
     Indication: BEHCET^S SYNDROME
     Route: 050
     Dates: start: 20160208, end: 20160222

REACTIONS (4)
  - Ileus [Recovered/Resolved]
  - Gastrointestinal ulcer [Unknown]
  - Abdominal adhesions [Unknown]
  - Ileal stenosis [Unknown]

NARRATIVE: CASE EVENT DATE: 20160208
